FAERS Safety Report 13628558 (Version 3)
Quarter: 2017Q2

REPORT INFORMATION
  Report Type: Spontaneous
  Country: JP (occurrence: JP)
  Receive Date: 20170608
  Receipt Date: 20170623
  Transmission Date: 20170830
  Serious: Yes (Death)
  Sender: FDA-Public Use
  Company Number: JP-BAYER-2017-103942

PATIENT
  Age: 54 Year
  Sex: Female
  Weight: 28.4 kg

DRUGS (12)
  1. CELECOXIB. [Concomitant]
     Active Substance: CELECOXIB
     Indication: BACK PAIN
     Dosage: DAILY DOSE 200 MG
     Route: 048
     Dates: end: 20170323
  2. MECOBALAMIN [Concomitant]
     Active Substance: METHYLCOBALAMIN
     Indication: NEUROPATHY PERIPHERAL
     Dosage: DAILY DOSE 1500 ?G
     Route: 048
     Dates: end: 20170323
  3. ADEMPAS [Suspect]
     Active Substance: RIOCIGUAT
     Indication: PULMONARY ARTERIAL HYPERTENSION
     Dosage: 1 MG, TID
     Route: 048
     Dates: start: 20170314, end: 20170323
  4. ALDACTONE A [Concomitant]
     Active Substance: SPIRONOLACTONE
     Indication: RIGHT VENTRICULAR FAILURE
     Dosage: DAILY DOSE 50 MG
     Route: 048
     Dates: end: 20170323
  5. THEO-DUR [Concomitant]
     Active Substance: THEOPHYLLINE ANHYDROUS
     Indication: ASTHMA
     Dosage: DAILY DOSE 200 MG
     Route: 048
     Dates: end: 20170323
  6. CLEANAL [Concomitant]
     Active Substance: FUDOSTEINE
     Indication: BRONCHITIS CHRONIC
     Dosage: DAILY DOSE 1200 MG
     Route: 048
     Dates: end: 20170323
  7. HALRACK [Concomitant]
     Active Substance: TRIAZOLAM
     Indication: INSOMNIA
     Dosage: DAILY DOSE 0.125 MG
     Route: 048
     Dates: end: 20170323
  8. MAGNESIUM OXIDE. [Concomitant]
     Active Substance: MAGNESIUM OXIDE
     Indication: CONSTIPATION
     Dosage: DAILY DOSE 750 MG
     Route: 048
     Dates: end: 20170323
  9. AZULENE-GLUTAMINE [Concomitant]
     Indication: CHRONIC GASTRITIS
     Dosage: DAILY DOSE 3 DF
     Route: 048
     Dates: end: 20170323
  10. ADEMPAS [Suspect]
     Active Substance: RIOCIGUAT
     Indication: PULMONARY ARTERIAL HYPERTENSION
     Dosage: 0.5 MG, TID
     Route: 048
     Dates: start: 20170308, end: 20170313
  11. CLARITHROMYCIN. [Concomitant]
     Active Substance: CLARITHROMYCIN
     Indication: BRONCHITIS CHRONIC
     Dosage: DAILY DOSE 400 MG
     Route: 048
     Dates: end: 20170323
  12. FUROSEMIDE. [Concomitant]
     Active Substance: FUROSEMIDE
     Indication: RIGHT VENTRICULAR FAILURE
     Dosage: DAILY DOSE 40 MG
     Route: 048
     Dates: end: 20170323

REACTIONS (1)
  - Sudden death [Fatal]

NARRATIVE: CASE EVENT DATE: 20170323
